FAERS Safety Report 8578360-X (Version None)
Quarter: 2012Q3

REPORT INFORMATION
  Report Type: 
  Country: None (occurrence: None)
  Receive Date: 20120726
  Receipt Date: 20120720
  Transmission Date: 20120928
  Serious: Yes (Life-Threatening, Hospitalization)
  Sender: FDA-Public Use
  Company Number: 2012AL000066

PATIENT
  Age: 55 Year
  Sex: Male
  Weight: 84.5 kg

DRUGS (11)
  1. ALBUTEROL [Concomitant]
  2. LEUCOVORIN CALCIUM [Concomitant]
  3. LORAZEPAM [Concomitant]
  4. CYANOCOBALAMIN [Concomitant]
  5. DULOXETINE HYDROCHLORIDE [Concomitant]
  6. OXALIPLATIN [Suspect]
     Dosage: 65 MG/M**2;
     Dates: start: 20120416, end: 20120709
  7. FOLIC ACID [Concomitant]
  8. FOLOTYN [Suspect]
     Indication: OESOPHAGEAL CARCINOMA
     Dosage: 80 MG/M**2; ;IV
     Route: 042
     Dates: start: 20120416, end: 20120709
  9. PROCHLORPERAZINE [Concomitant]
  10. METOCLOPRAMIDE [Concomitant]
  11. BENADRYL/LIDOCAINE VISCOUS/MAALOX [Concomitant]

REACTIONS (1)
  - MYOCARDIAL INFARCTION [None]
